FAERS Safety Report 5981379-6 (Version None)
Quarter: 2008Q4

REPORT INFORMATION
  Report Type: 
  Country: None (occurrence: None)
  Receive Date: 20081205
  Receipt Date: 20081125
  Transmission Date: 20090506
  Serious: Yes (Other)
  Sender: FDA-Public Use
  Company Number: US-AVENTIS-200814140US

PATIENT
  Sex: Female
  Weight: 63.6 kg

DRUGS (22)
  1. KETEK [Suspect]
     Indication: EAR INFECTION
     Dosage: DOSE: UNK SAMPLES
     Dates: start: 20060701, end: 20060701
  2. KETEK [Suspect]
     Dosage: DOSE: UNK
     Dates: start: 20060801, end: 20060906
  3. LEVAQUIN [Suspect]
     Dosage: DOSE: UNK
     Dates: start: 20060905, end: 20060906
  4. LEVAQUIN [Suspect]
     Dosage: DOSE: UNK
     Dates: start: 20060901, end: 20060914
  5. FLAGYL [Suspect]
     Dosage: DOSE: UNK
     Dates: start: 20060905, end: 20060906
  6. AVALIDE [Suspect]
     Dosage: DOSE: 300/12.5
     Dates: start: 20060101, end: 20060906
  7. TYLENOL (CAPLET) [Suspect]
  8. TYLENOL (CAPLET) [Suspect]
     Dates: start: 20060902
  9. TYLENOL (CAPLET) [Suspect]
     Indication: HEADACHE
  10. TYLENOL (CAPLET) [Suspect]
     Dates: start: 20060902
  11. HYDROCORTISONE EAR DROPS [Concomitant]
     Indication: INFLAMMATION
     Dosage: DOSE: UNK
     Dates: start: 20060901
  12. TOPICAL PRODUCTS FOR JOINT AND MUSCULAR PAIN [Concomitant]
     Dosage: DOSE: UNK
     Dates: start: 20060901
  13. DILAUDID [Concomitant]
     Dosage: DOSE: USE ONCE DISCHARGED
     Dates: start: 20060901
  14. ACCUPRIL [Concomitant]
     Dosage: DOSE: UNK
     Dates: start: 20060901
  15. LOTRIMIN [Concomitant]
     Dosage: DOSE: UNK
  16. DIFLUCAN [Concomitant]
     Dosage: DOSE: FOR FIVE DAYS
  17. NON-MEDICATION THERAPY [Concomitant]
     Dosage: DOSE: UNK
  18. MIRAPEX [Concomitant]
     Dosage: DOSE: 0.25 FOR THREE MONTHS
  19. VOSOL HC OTIC [Concomitant]
     Dosage: DOSE: UNK
  20. ALLEGRA-D 12 HOUR [Concomitant]
     Dosage: DOSE: UNK
  21. CIPRODEX                           /01633401/ [Concomitant]
     Dosage: DOSE: UNK
  22. TYLENOL W/ CODEINE NO. 3 [Concomitant]
     Dosage: DOSE: UNK

REACTIONS (12)
  - ABDOMINAL PAIN [None]
  - CHILLS [None]
  - CHROMATURIA [None]
  - DECREASED APPETITE [None]
  - DIARRHOEA [None]
  - HEPATIC ENZYME INCREASED [None]
  - HEPATIC FAILURE [None]
  - HEPATITIS [None]
  - JAUNDICE [None]
  - NAUSEA [None]
  - PYREXIA [None]
  - VOMITING [None]
